FAERS Safety Report 8206987-3 (Version None)
Quarter: 2012Q1

REPORT INFORMATION
  Report Type: 
  Country: None (occurrence: None)
  Receive Date: 20120312
  Receipt Date: 20120229
  Transmission Date: 20120608
  Serious: Yes (Hospitalization)
  Sender: FDA-Public Use
  Company Number: DSJ-2011-26204

PATIENT
  Age: 75 Year
  Sex: Female

DRUGS (6)
  1. AMLODIPINE BESYLATE AND OLMESARTAN MEDOXOMIL [Suspect]
     Indication: HYPERTENSION
     Dosage: SEE IMAGE
     Route: 048
     Dates: start: 20090101, end: 20111201
  2. AMLODIPINE BESYLATE AND OLMESARTAN MEDOXOMIL [Suspect]
     Indication: HYPERTENSION
     Dosage: SEE IMAGE
     Route: 048
     Dates: start: 20111201, end: 20111201
  3. AMLODIPINE BESYLATE AND OLMESARTAN MEDOXOMIL [Suspect]
     Indication: HYPERTENSION
     Dosage: SEE IMAGE
     Route: 048
     Dates: start: 20111201, end: 20120213
  4. AMLODIPINE BESYLATE AND OLMESARTAN MEDOXOMIL [Suspect]
     Indication: HYPERTENSION
     Dosage: SEE IMAGE
     Route: 048
     Dates: start: 20120214
  5. ATENOLOL [Concomitant]
  6. METFORMIN HCL [Concomitant]

REACTIONS (5)
  - DRUG INEFFECTIVE [None]
  - BLOOD PRESSURE INCREASED [None]
  - INFARCTION [None]
  - OEDEMA PERIPHERAL [None]
  - DRUG ADMINISTRATION ERROR [None]
